FAERS Safety Report 26097084 (Version 2)
Quarter: 2025Q4

REPORT INFORMATION
  Report Type: Spontaneous
  Country: US (occurrence: US)
  Receive Date: 20251127
  Receipt Date: 20251209
  Transmission Date: 20260118
  Serious: Yes (Life-Threatening, Hospitalization)
  Sender: TEVA
  Company Number: US-TEVA-VS-3394789

PATIENT
  Age: 30 Year
  Sex: Female

DRUGS (3)
  1. QUETIAPINE [Suspect]
     Active Substance: QUETIAPINE
     Indication: Bipolar disorder
     Route: 048
  2. LORAZEPAM [Concomitant]
     Active Substance: LORAZEPAM
     Indication: Bipolar disorder
     Route: 065
  3. PROPOFOL [Suspect]
     Active Substance: PROPOFOL
     Indication: Status epilepticus
     Route: 065

REACTIONS (14)
  - Toxicity to various agents [Recovering/Resolving]
  - Electrocardiogram QT prolonged [Recovering/Resolving]
  - Overdose [Unknown]
  - Electrocardiogram QRS complex prolonged [Recovering/Resolving]
  - Hyperthermia [Recovering/Resolving]
  - Drug ineffective [Unknown]
  - Sinus tachycardia [Recovering/Resolving]
  - Status epilepticus [Recovering/Resolving]
  - Somnolence [Recovering/Resolving]
  - Unresponsive to stimuli [Recovering/Resolving]
  - Mental status changes [Recovering/Resolving]
  - Nystagmus [Recovering/Resolving]
  - Clonus [Recovering/Resolving]
  - Myoclonus [Recovering/Resolving]
